FAERS Safety Report 17875458 (Version 1)
Quarter: 2020Q2

REPORT INFORMATION
  Report Type: Other
  Country: CA (occurrence: CA)
  Receive Date: 20200609
  Receipt Date: 20200609
  Transmission Date: 20200714
  Serious: Yes (Death, Congenital Anomaly, Other)
  Sender: FDA-Public Use
  Company Number: CA-APOTEX-2020AP011715

PATIENT
  Age: 20 Week
  Sex: Male

DRUGS (3)
  1. VITAMIN D                          /00107901/ [Concomitant]
     Active Substance: ERGOCALCIFEROL
     Indication: PRODUCT USED FOR UNKNOWN INDICATION
     Dosage: UNK
     Route: 065
  2. APO-ARIPIPRAZOLE [Suspect]
     Active Substance: ARIPIPRAZOLE
     Indication: BIPOLAR I DISORDER
     Dosage: 30 MG, QD
     Route: 064
  3. FOLIC ACID. [Concomitant]
     Active Substance: FOLIC ACID
     Indication: PRODUCT USED FOR UNKNOWN INDICATION
     Dosage: UNK
     Route: 065

REACTIONS (8)
  - Stillbirth [Fatal]
  - Cerebral cyst [Fatal]
  - Diaphragmatic hernia [Fatal]
  - Micrognathia [Fatal]
  - Cardiac malposition [Fatal]
  - Abnormal organ growth [Fatal]
  - Traumatic lung injury [Fatal]
  - Renal cyst [Fatal]
